FAERS Safety Report 8554857-3 (Version None)
Quarter: 2012Q3

REPORT INFORMATION
  Report Type: 
  Country: None (occurrence: None)
  Receive Date: 20120731
  Receipt Date: 20120723
  Transmission Date: 20120928
  Serious: Yes (Other)
  Sender: FDA-Public Use
  Company Number: JP-VERTEX PHARMACEUTICALS INC.-AE-2012-010908

PATIENT
  Age: 43 Year
  Sex: Male

DRUGS (8)
  1. PEGINTERFERON ALFA-2B [Concomitant]
     Route: 058
     Dates: start: 20120704
  2. TELAVIC (TELAPREVIR) [Suspect]
     Indication: HEPATITIS C
     Route: 048
     Dates: start: 20120601
  3. RIBAVIRIN [Concomitant]
     Route: 048
     Dates: start: 20120601, end: 20120626
  4. PEGINTERFERON ALFA-2B [Concomitant]
     Route: 058
     Dates: start: 20120620
  5. RIBAVIRIN [Concomitant]
     Route: 048
     Dates: start: 20120711
  6. PEGINTERFERON ALFA-2B [Concomitant]
     Route: 058
     Dates: start: 20120627
  7. PEGINTERFERON ALFA-2B [Concomitant]
     Indication: HEPATITIS C
     Route: 058
     Dates: start: 20120601, end: 20120613
  8. RIBAVIRIN [Concomitant]
     Route: 048
     Dates: start: 20120627, end: 20120710

REACTIONS (1)
  - NEUTROPHIL COUNT DECREASED [None]
